FAERS Safety Report 9666595 (Version 1)
Quarter: 2013Q4

REPORT INFORMATION
  Report Type: Report from Study
  Country: US (occurrence: US)
  Receive Date: 20131104
  Receipt Date: 20131104
  Transmission Date: 20140711
  Serious: Yes (Hospitalization)
  Sender: FDA-Public Use
  Company Number: US-SHIRE-ALL1-2013-07505

PATIENT
  Sex: Male

DRUGS (4)
  1. IDURSULFASE [Suspect]
     Indication: MUCOPOLYSACCHARIDOSIS II
     Dosage: UNK, UNKNOWN
     Route: 041
     Dates: start: 20100204
  2. FRUSEMIDE                          /00032601/ [Concomitant]
     Indication: CARDIOVASCULAR DISORDER
     Dosage: 240 MG, 2X/DAY:BID
     Route: 048
     Dates: start: 20120223, end: 20120307
  3. DOCUSATE [Concomitant]
     Indication: GASTROINTESTINAL DISORDER
     Dosage: 100 MG, 2X/DAY:BID
     Route: 048
     Dates: start: 20120307, end: 2012
  4. BUMETANIDE [Concomitant]
     Indication: CARDIOVASCULAR DISORDER
     Dosage: 6 MG, 2X/DAY:BID
     Route: 048
     Dates: start: 20120307, end: 20120322

REACTIONS (2)
  - Fluid overload [Unknown]
  - Condition aggravated [Unknown]
